FAERS Safety Report 5448180-3 (Version None)
Quarter: 2007Q3

REPORT INFORMATION
  Report Type: 
  Country: None (occurrence: None)
  Receive Date: 20070905
  Receipt Date: 20070822
  Transmission Date: 20080115
  Serious: Yes (Life-Threatening)
  Sender: FDA-Public Use
  Company Number: 20070209

PATIENT
  Sex: Female

DRUGS (1)
  1. IRON-DEXTRAN COMPLEX INJ [Suspect]
     Indication: IRON DEFICIENCY ANAEMIA
     Dosage: INTRAMUSCULAR
     Route: 030

REACTIONS (4)
  - ANAPHYLACTIC SHOCK [None]
  - DRUG EXPOSURE DURING PREGNANCY [None]
  - INTRA-UTERINE DEATH [None]
  - LOSS OF CONSCIOUSNESS [None]
